FAERS Safety Report 4802793-8 (Version None)
Quarter: 2005Q4

REPORT INFORMATION
  Report Type: 
  Country: None (occurrence: None)
  Receive Date: 20051019
  Receipt Date: 20050315
  Transmission Date: 20060501
  Serious: Yes (Hospitalization)
  Sender: FDA-Public Use
  Company Number: 2005UW04211

PATIENT
  Age: 48 Year
  Sex: Male

DRUGS (12)
  1. CRESTOR [Suspect]
     Route: 048
     Dates: start: 20040601, end: 20050221
  2. CRESTOR [Suspect]
     Route: 048
     Dates: start: 20041001
  3. LIPITOR [Concomitant]
     Dates: end: 20040601
  4. VERAPAMIL [Concomitant]
  5. ASPIRIN [Concomitant]
  6. INSULIN [Concomitant]
  7. ATENOLOL [Concomitant]
  8. ALTACE [Concomitant]
  9. DOXAZOSIN [Concomitant]
  10. INDAPAMIDE [Concomitant]
  11. AMOXICILLIN [Concomitant]
     Indication: UPPER RESPIRATORY TRACT INFECTION
  12. CIPRO [Concomitant]
     Indication: UPPER RESPIRATORY TRACT INFECTION

REACTIONS (7)
  - BLOOD CREATINE PHOSPHOKINASE INCREASED [None]
  - DIALYSIS [None]
  - HAEMATURIA [None]
  - HYPERVOLAEMIA [None]
  - PULMONARY OEDEMA [None]
  - RENAL FAILURE ACUTE [None]
  - RHABDOMYOLYSIS [None]
